FAERS Safety Report 15176472 (Version 2)
Quarter: 2018Q4

REPORT INFORMATION
  Report Type: Report from Study
  Country: US (occurrence: US)
  Receive Date: 20180720
  Receipt Date: 20181017
  Transmission Date: 20190204
  Serious: No
  Sender: FDA-Public Use
  Company Number: US-AMGEN-USASL2018075339

PATIENT
  Sex: Female

DRUGS (1)
  1. REPATHA [Suspect]
     Active Substance: EVOLOCUMAB
     Indication: TYPE IIA HYPERLIPIDAEMIA
     Dosage: 140 MG, Q2WK
     Route: 058
     Dates: start: 20170412

REACTIONS (8)
  - Muscle spasms [Unknown]
  - Anxiety [Unknown]
  - Weight increased [Unknown]
  - Urinary tract infection [Unknown]
  - Melanocytic naevus [Unknown]
  - Skin burning sensation [Unknown]
  - Stress [Unknown]
  - Fall [Unknown]

NARRATIVE: CASE EVENT DATE: 2018
